FAERS Safety Report 7069737-2 (Version None)
Quarter: 2010Q4

REPORT INFORMATION
  Report Type: 
  Country: None (occurrence: None)
  Receive Date: 20101028
  Receipt Date: 20100505
  Transmission Date: 20110411
  Serious: No
  Sender: FDA-Public Use
  Company Number: US-WYE-H14973210

PATIENT
  Sex: Female
  Weight: 84.9 kg

DRUGS (9)
  1. VENLAFAXINE HYDROCHLORIDE [Suspect]
     Indication: DEPRESSION
     Route: 048
     Dates: start: 20020101, end: 20090901
  2. VENLAFAXINE HYDROCHLORIDE [Suspect]
     Route: 048
     Dates: start: 20100501
  3. PREMARIN [Concomitant]
  4. BUPROPION HYDROCHLORIDE [Concomitant]
  5. PRISTIQ [Suspect]
     Indication: DEPRESSION
     Route: 048
     Dates: start: 20100401
  6. PRISTIQ [Suspect]
     Indication: APATHY
  7. LEXAPRO [Suspect]
     Indication: DEPRESSION
     Route: 048
     Dates: start: 20020101, end: 20090901
  8. LEXAPRO [Suspect]
     Route: 048
     Dates: start: 20090901, end: 20100401
  9. LEXAPRO [Suspect]
     Dosage: DOSE WAS REDUCED IN ORDER TO TAPER OFF
     Dates: start: 20100401

REACTIONS (8)
  - ANXIETY [None]
  - APATHY [None]
  - BLOOD PRESSURE INCREASED [None]
  - DRUG EFFECT DECREASED [None]
  - DRUG WITHDRAWAL SYNDROME [None]
  - HYPERHIDROSIS [None]
  - PANIC ATTACK [None]
  - SOMNOLENCE [None]
